FAERS Safety Report 9703696 (Version 29)
Quarter: 2023Q2

REPORT INFORMATION
  Report Type: Other
  Country: CA (occurrence: None)
  Receive Date: 20131122
  Receipt Date: 20230505
  Transmission Date: 20230722
  Serious: Yes (Other)
  Sender: FDA-Public Use
  Company Number: CA-ROCHE-1203828

PATIENT
  Age: 54 Year
  Sex: Male
  Weight: 122.47 kg

DRUGS (17)
  1. ACTEMRA [Suspect]
     Active Substance: TOCILIZUMAB
     Indication: Rheumatoid arthritis
     Route: 042
     Dates: start: 20121115
  2. ACTEMRA [Suspect]
     Active Substance: TOCILIZUMAB
     Route: 042
     Dates: start: 20131212
  3. ACTEMRA [Suspect]
     Active Substance: TOCILIZUMAB
     Route: 042
     Dates: start: 20151222
  4. ACTEMRA [Suspect]
     Active Substance: TOCILIZUMAB
     Route: 042
     Dates: start: 20160119, end: 20160809
  5. ACTEMRA [Suspect]
     Active Substance: TOCILIZUMAB
     Route: 042
  6. ACTEMRA [Suspect]
     Active Substance: TOCILIZUMAB
     Route: 042
  7. RITUXAN [Suspect]
     Active Substance: RITUXIMAB
     Indication: Rheumatoid arthritis
     Route: 042
     Dates: start: 20140918, end: 20150428
  8. NABUMETONE [Concomitant]
     Active Substance: NABUMETONE
  9. MORPHINE [Concomitant]
     Active Substance: MORPHINE
  10. NABILONE [Concomitant]
     Active Substance: NABILONE
  11. ORENCIA [Concomitant]
     Active Substance: ABATACEPT
  12. AZATHIOPRINE [Concomitant]
     Active Substance: AZATHIOPRINE
  13. ENDOCET [Concomitant]
     Active Substance: ACETAMINOPHEN\OXYCODONE HYDROCHLORIDE
  14. LOSEC [Concomitant]
     Active Substance: OMEPRAZOLE
  15. DIPHENHYDRAMINE HYDROCHLORIDE [Concomitant]
     Active Substance: DIPHENHYDRAMINE HYDROCHLORIDE
     Route: 048
     Dates: start: 20140918
  16. ACETAMINOPHEN [Concomitant]
     Active Substance: ACETAMINOPHEN
     Route: 048
     Dates: start: 20140918
  17. METHYLPREDNISOLONE [Concomitant]
     Active Substance: METHYLPREDNISOLONE
     Route: 042
     Dates: start: 20140918

REACTIONS (22)
  - Pneumonia [Recovered/Resolved]
  - Eye disorder [Not Recovered/Not Resolved]
  - Hernia [Unknown]
  - Rotator cuff repair [Not Recovered/Not Resolved]
  - Eye disorder [Not Recovered/Not Resolved]
  - Blood pressure increased [Unknown]
  - Nasopharyngitis [Recovered/Resolved]
  - Blood pressure systolic increased [Recovering/Resolving]
  - Drug ineffective [Unknown]
  - Infusion related reaction [Unknown]
  - Presyncope [Unknown]
  - Fatigue [Unknown]
  - Hyperhidrosis [Unknown]
  - Headache [Unknown]
  - Blood pressure increased [Unknown]
  - Weight increased [Unknown]
  - Blood pressure increased [Unknown]
  - Weight decreased [Unknown]
  - Hypertension [Unknown]
  - Blood pressure diastolic increased [Unknown]
  - Rheumatoid arthritis [Unknown]
  - Eye inflammation [Recovered/Resolved]

NARRATIVE: CASE EVENT DATE: 20130301
